FAERS Safety Report 7364097-1 (Version None)
Quarter: 2011Q1

REPORT INFORMATION
  Report Type: 
  Country: None (occurrence: None)
  Receive Date: 20110321
  Receipt Date: 20110311
  Transmission Date: 20110831
  Serious: Yes (Hospitalization, Other)
  Sender: FDA-Public Use
  Company Number: US-ASTRAZENECA-2010SE39057

PATIENT
  Age: 54 Year
  Sex: Male
  Weight: 149.7 kg

DRUGS (9)
  1. IBUPROFEN [Concomitant]
  2. PULMICORT RESPULES [Suspect]
     Route: 055
  3. BROVANA [Concomitant]
  4. MULTIVITAMIN [Concomitant]
  5. SYMBICORT [Suspect]
     Indication: CHRONIC OBSTRUCTIVE PULMONARY DISEASE
     Dosage: 160/4.5, 2 PUFFS, TWO TIMES A DAY.
     Route: 055
  6. NEURONTIN [Concomitant]
  7. FLEXERIL [Concomitant]
  8. COMBIVENT [Concomitant]
  9. HYDROCODONE BITARTRATE [Concomitant]

REACTIONS (4)
  - VISUAL IMPAIRMENT [None]
  - DRUG INEFFECTIVE [None]
  - DYSPNOEA [None]
  - LUNG NEOPLASM MALIGNANT [None]
